FAERS Safety Report 25952489 (Version 1)
Quarter: 2025Q4

REPORT INFORMATION
  Report Type: Spontaneous
  Country: EU (occurrence: EU)
  Receive Date: 20251023
  Receipt Date: 20251023
  Transmission Date: 20260117
  Serious: Yes (Other)
  Sender: PFIZER
  Company Number: EU-BIOVITRUM-2025-HU-013714

PATIENT
  Age: 67 Year
  Sex: Female

DRUGS (2)
  1. RITUXIMAB [Suspect]
     Active Substance: RITUXIMAB
     Indication: Diffuse large B-cell lymphoma stage IV
     Dosage: UNK
  2. LONCASTUXIMAB TESIRINE-LPYL [Suspect]
     Active Substance: LONCASTUXIMAB TESIRINE-LPYL
     Indication: Diffuse large B-cell lymphoma stage IV
     Dosage: UNK
     Dates: start: 202308

REACTIONS (3)
  - Biliary obstruction [Unknown]
  - Hepatic enzyme increased [Unknown]
  - Photosensitivity reaction [Unknown]
